FAERS Safety Report 5980168-6 (Version None)
Quarter: 2008Q4

REPORT INFORMATION
  Report Type: 
  Country: None (occurrence: None)
  Receive Date: 20081202
  Receipt Date: 20081202
  Transmission Date: 20090506
  Serious: Yes (Other)
  Sender: FDA-Public Use
  Company Number: None

PATIENT
  Age: 24 Year
  Sex: Female
  Weight: 68.0396 kg

DRUGS (2)
  1. CAPZASIN NO-MESS APPLICATOR CHATTEM, INC. - DISTRIBUTOR - [Suspect]
     Indication: BACK PAIN
     Dosage: AS NEEDED 1X/DAY TOP
     Route: 061
     Dates: start: 20081128, end: 20081130
  2. CAPZASIN NO-MESS APPLICATOR CHATTEM, INC. - DISTRIBUTOR - [Suspect]
     Indication: MUSCLE STRAIN
     Dosage: AS NEEDED 1X/DAY TOP
     Route: 061
     Dates: start: 20081128, end: 20081130

REACTIONS (3)
  - BURNING SENSATION [None]
  - ERYTHEMA [None]
  - MEDICATION ERROR [None]
